APPROVED DRUG PRODUCT: DEXTROSE 4% IN MODIFIED LACTATED RINGER'S IN PLASTIC CONTAINER
Active Ingredient: CALCIUM CHLORIDE; DEXTROSE; POTASSIUM CHLORIDE; SODIUM CHLORIDE; SODIUM LACTATE
Strength: 4MG/100ML;4GM/100ML;6MG/100ML;120MG/100ML;62MG/100ML
Dosage Form/Route: INJECTABLE;INJECTION
Application: N019634 | Product #002
Applicant: B BRAUN MEDICAL INC
Approved: Feb 24, 1988 | RLD: No | RS: No | Type: DISCN